FAERS Safety Report 10131667 (Version 2)
Quarter: 2014Q3

REPORT INFORMATION
  Report Type: Spontaneous
  Country: IT (occurrence: IT)
  Receive Date: 20140428
  Receipt Date: 20140729
  Transmission Date: 20150326
  Serious: Yes (Hospitalization)
  Sender: FDA-Public Use
  Company Number: IT-TEVA-476739ISR

PATIENT
  Age: 67 Year
  Sex: Female

DRUGS (6)
  1. ENTECAVIR [Concomitant]
     Active Substance: ENTECAVIR
     Indication: HEPATITIS B SURFACE ANTIGEN POSITIVE
  2. DELTACORTENE [Concomitant]
     Active Substance: PREDNISONE
     Indication: RHEUMATOID ARTHRITIS
  3. METHOTREXATE [Concomitant]
     Active Substance: METHOTREXATE
     Indication: RHEUMATOID ARTHRITIS
  4. HYDROXYCHLOROQUINE SULFATE. [Concomitant]
     Active Substance: HYDROXYCHLOROQUINE SULFATE
     Indication: RHEUMATOID ARTHRITIS
  5. ALENDRONIC ACID [Concomitant]
     Active Substance: ALENDRONIC ACID
     Indication: RHEUMATOID ARTHRITIS
  6. CITALOPRAM [Suspect]
     Active Substance: CITALOPRAM HYDROBROMIDE
     Indication: ANXIETY
     Dosage: 10 GTT TOTAL
     Route: 048
     Dates: start: 20140331, end: 20140331

REACTIONS (4)
  - Hypokalaemia [Recovered/Resolved]
  - Intentional product misuse [Unknown]
  - Troponin I increased [Recovered/Resolved]
  - Chest pain [Recovered/Resolved]

NARRATIVE: CASE EVENT DATE: 20140401
